FAERS Safety Report 10456193 (Version 4)
Quarter: 2015Q1

REPORT INFORMATION
  Report Type: Report from Study
  Country: JP (occurrence: JP)
  Receive Date: 20140916
  Receipt Date: 20150209
  Transmission Date: 20150720
  Serious: Yes (Hospitalization)
  Sender: FDA-Public Use
  Company Number: JP-ASTELLAS-2014JP019816

PATIENT
  Age: 88 Year
  Sex: Female

DRUGS (3)
  1. SPIROPENT [Concomitant]
     Active Substance: CLENBUTEROL HYDROCHLORIDE
     Indication: STRESS URINARY INCONTINENCE
     Dosage: 20 MCG, ONCE DAILY
     Route: 048
  2. MIRABEGRON [Suspect]
     Active Substance: MIRABEGRON
     Indication: HYPERTONIC BLADDER
     Route: 065
     Dates: start: 20130508, end: 20140602
  3. MIRABEGRON [Suspect]
     Active Substance: MIRABEGRON
     Dosage: UNK, AS NEEDED
     Route: 048
     Dates: start: 2014

REACTIONS (3)
  - Femoral neck fracture [Recovered/Resolved]
  - Intentional product misuse [Unknown]
  - Urine output decreased [Recovered/Resolved]

NARRATIVE: CASE EVENT DATE: 2014
